FAERS Safety Report 4804187-8 (Version None)
Quarter: 2005Q4

REPORT INFORMATION
  Report Type: 
  Country: None (occurrence: None)
  Receive Date: 20051020
  Receipt Date: 20051013
  Transmission Date: 20060501
  Serious: Yes (Hospitalization, Other)
  Sender: FDA-Public Use
  Company Number: 200517434US

PATIENT
  Sex: Female

DRUGS (9)
  1. KETEK [Suspect]
     Indication: PNEUMONIA
     Route: 048
     Dates: start: 20050907, end: 20050925
  2. COUMADIN [Suspect]
     Indication: ATRIAL FIBRILLATION
     Dosage: DOSE: 2.5 MG TUE, T
     Route: 048
  3. ALBUTEROL [Concomitant]
     Dosage: DOSE: NOT PROVIDED
  4. ADVAIR DISKUS 100/50 [Concomitant]
     Dosage: DOSE: NOT PROVIDED
  5. DILTIAZEM [Concomitant]
     Dosage: DOSE: NOT PROVIDED
  6. LASIX [Concomitant]
     Dosage: DOSE: NOT PROVIDED
  7. POTASSIUM [Concomitant]
     Dosage: DOSE: NOT PROVIDED
  8. DARVOCET-N 100 [Concomitant]
     Dosage: DOSE: NOT PROVIDED
  9. QUININE [Concomitant]
     Dosage: DOSE: NOT PROVIDED

REACTIONS (2)
  - CHRONIC OBSTRUCTIVE PULMONARY DISEASE [None]
  - INTERNATIONAL NORMALISED RATIO INCREASED [None]
